FAERS Safety Report 20383538 (Version 1)
Quarter: 2022Q1

REPORT INFORMATION
  Report Type: Spontaneous
  Country: None (occurrence: IT)
  Receive Date: 20220127
  Receipt Date: 20220127
  Transmission Date: 20220423
  Serious: No
  Sender: FDA-Public Use
  Company Number: IT-SERB S.A.S.-2124347

PATIENT
  Age: 35 Year
  Sex: Female

DRUGS (7)
  1. CYANOKIT [Suspect]
     Active Substance: HYDROXOCOBALAMIN
     Indication: Poisoning
     Route: 042
  2. ACTIVATED CHARCOAL [Concomitant]
     Active Substance: ACTIVATED CHARCOAL
     Route: 065
  3. MAGNESIUM SULFATE [Concomitant]
     Active Substance: MAGNESIUM SULFATE
     Route: 065
  4. SALINE [Concomitant]
     Active Substance: SODIUM CHLORIDE
     Route: 065
  5. AMYL NITRITE [Concomitant]
     Active Substance: AMYL NITRITE
     Route: 042
  6. sodium thiosulphate; glucose solution?(SODIUM THIOSULFATE; GLUCOSE?SOL [Concomitant]
     Route: 042
  7. electrolytic solution (POLYELECTROLYTE) [Concomitant]
     Route: 065

REACTIONS (1)
  - Chromaturia [Recovered/Resolved]
